FAERS Safety Report 5087485-5 (Version None)
Quarter: 2006Q3

REPORT INFORMATION
  Report Type: 
  Country: None (occurrence: None)
  Receive Date: 20060823
  Receipt Date: 20060823
  Transmission Date: 20061208
  Serious: Yes (Hospitalization)
  Sender: FDA-Public Use
  Company Number: None

PATIENT
  Age: 58 Year
  Sex: Male
  Weight: 87.1 kg

DRUGS (1)
  1. WARFARIN SODIUM [Suspect]
     Dosage: 6 MG QD PO
     Route: 048

REACTIONS (7)
  - ANAEMIA [None]
  - ARRHYTHMIA [None]
  - GASTROINTESTINAL HAEMORRHAGE [None]
  - INTERNATIONAL NORMALISED RATIO INCREASED [None]
  - MEDICAL DIET [None]
  - TONGUE BITING [None]
  - TONGUE HAEMORRHAGE [None]
